FAERS Safety Report 5289499-9 (Version None)
Quarter: 2007Q2

REPORT INFORMATION
  Report Type: 
  Country: None (occurrence: None)
  Receive Date: 20070406
  Receipt Date: 20070328
  Transmission Date: 20071010
  Serious: Yes (Life-Threatening, Hospitalization, Other)
  Sender: FDA-Public Use
  Company Number: PHNU2007SI01377

PATIENT
  Age: 81 Year
  Sex: Female

DRUGS (5)
  1. EMSELEX EXTENDED RELEASE [Suspect]
     Indication: INCONTINENCE
     Dosage: 7.5 MG, QD
     Route: 048
     Dates: start: 20060713, end: 20061211
  2. PLAVIX [Concomitant]
     Dosage: 75 MG, QD
     Route: 048
  3. PREXANIL [Concomitant]
     Dosage: 4 MG, QD
  4. IMPORTAL [Concomitant]
     Dosage: 2 DF, QD
  5. NOLICIN [Concomitant]
     Dosage: 1 DF, BID

REACTIONS (8)
  - APHASIA [None]
  - C-REACTIVE PROTEIN INCREASED [None]
  - CONFUSIONAL STATE [None]
  - HYPERTENSION [None]
  - INFARCTION [None]
  - ISCHAEMIC CEREBRAL INFARCTION [None]
  - SPEECH DISORDER [None]
  - WHITE BLOOD CELL COUNT INCREASED [None]
